FAERS Safety Report 5368117-5 (Version None)
Quarter: 2007Q2

REPORT INFORMATION
  Report Type: 
  Country: None (occurrence: None)
  Receive Date: 20070622
  Receipt Date: 20070604
  Transmission Date: 20071010
  Serious: Yes (Death)
  Sender: FDA-Public Use
  Company Number: US-PFIZER INC-2007050241

PATIENT

DRUGS (1)
  1. ZYVOX [Suspect]

REACTIONS (2)
  - COMPLETED SUICIDE [None]
  - DERMATITIS PSORIASIFORM [None]
